FAERS Safety Report 7108196-8 (Version None)
Quarter: 2010Q4

REPORT INFORMATION
  Report Type: 
  Country: None (occurrence: None)
  Receive Date: 20101117
  Receipt Date: 20101116
  Transmission Date: 20110411
  Serious: Yes (Hospitalization, Other)
  Sender: FDA-Public Use
  Company Number: CH-JNJFOC-20101101293

PATIENT
  Age: 22 Year
  Sex: Male
  Weight: 70 kg

DRUGS (1)
  1. RISPERDAL CONSTA [Suspect]
     Indication: SCHIZOPHRENIA
     Route: 030

REACTIONS (2)
  - ALOPECIA UNIVERSALIS [None]
  - ANTI-THYROID ANTIBODY POSITIVE [None]
